FAERS Safety Report 4819858-7 (Version None)
Quarter: 2005Q4

REPORT INFORMATION
  Report Type: 
  Country: None (occurrence: None)
  Receive Date: 20051102
  Receipt Date: 20051018
  Transmission Date: 20060501
  Serious: Yes (Life-Threatening)
  Sender: FDA-Public Use
  Company Number: 8012978

PATIENT
  Age: 81 Year
  Sex: Female

DRUGS (8)
  1. KEPPRA [Suspect]
     Indication: HALLUCINATION, AUDITORY
     Dosage: 500 MG 2/D PO
     Route: 048
     Dates: start: 20050727, end: 20050818
  2. KEPPRA [Suspect]
     Indication: HALLUCINATION, AUDITORY
     Dosage: PO
     Route: 048
     Dates: start: 20050818, end: 20050830
  3. OXAZEPAM [Concomitant]
  4. SEROXAT [Concomitant]
  5. LIPITOR [Concomitant]
  6. ASCAL [Concomitant]
  7. INSULIN ACTRAPID [Concomitant]
  8. DIAMICRON [Concomitant]

REACTIONS (6)
  - AGGRESSION [None]
  - CONDITION AGGRAVATED [None]
  - HALLUCINATION [None]
  - PARANOIA [None]
  - SCREAMING [None]
  - SUICIDE ATTEMPT [None]
